FAERS Safety Report 22309538 (Version 1)
Quarter: 2023Q2

REPORT INFORMATION
  Report Type: Report from Study
  Country: US (occurrence: US)
  Receive Date: 20230511
  Receipt Date: 20230511
  Transmission Date: 20230721
  Serious: Yes (Hospitalization, Other)
  Sender: FDA-Public Use
  Company Number: US-BAYER-2023A061374

PATIENT
  Age: 76 Year
  Sex: Female
  Weight: 72.562 kg

DRUGS (2)
  1. ADEMPAS [Suspect]
     Active Substance: RIOCIGUAT
     Indication: Pulmonary arterial hypertension
     Dosage: 0.5 MG, TID
     Route: 048
     Dates: start: 20230217
  2. ELIQUIS [Concomitant]
     Active Substance: APIXABAN

REACTIONS (3)
  - Haemoglobin decreased [None]
  - Colonoscopy [None]
  - Pulmonary thrombosis [None]

NARRATIVE: CASE EVENT DATE: 20230412
